FAERS Safety Report 4638237-9 (Version None)
Quarter: 2005Q2

REPORT INFORMATION
  Report Type: 
  Country: None (occurrence: None)
  Receive Date: 20050415
  Receipt Date: 20050328
  Transmission Date: 20051028
  Serious: Yes (Other)
  Sender: FDA-Public Use
  Company Number: USA050394334

PATIENT
  Age: 42 Year
  Sex: Female

DRUGS (7)
  1. CYMBALTA [Suspect]
     Dosage: 60 MG
     Dates: start: 20040101, end: 20050307
  2. STRATTERA [Suspect]
     Dosage: 60 MG
  3. ADVICOR [Concomitant]
  4. PERCOCET [Concomitant]
  5. MIRTAZAPINE [Concomitant]
  6. CARBATROL (CARBAMAZEPINE RIVOPHARM) [Concomitant]
  7. KLONOPIN [Concomitant]

REACTIONS (1)
  - CONVULSION [None]
